FAERS Safety Report 7620991-5 (Version None)
Quarter: 2011Q3

REPORT INFORMATION
  Report Type: 
  Country: None (occurrence: None)
  Receive Date: 20110719
  Receipt Date: 20100802
  Transmission Date: 20111222
  Serious: No
  Sender: FDA-Public Use
  Company Number: US-KINGPHARMUSA00001-K201000953

PATIENT
  Sex: Female
  Weight: 50.794 kg

DRUGS (1)
  1. LEVOXYL [Suspect]
     Dosage: UNK
     Route: 048
     Dates: start: 20080101

REACTIONS (2)
  - MALAISE [None]
  - ORAL DISCOMFORT [None]
